FAERS Safety Report 9186823 (Version 1)
Quarter: 2012Q4

REPORT INFORMATION
  Report Type: 
  Country: US (occurrence: US)
  Receive Date: 20121102
  Receipt Date: 20121102
  Transmission Date: 20130627
  Serious: No
  Sender: FDA-Public Use
  Company Number: US-PFIZER INC-2012268874

PATIENT
  Age: 65 Year
  Sex: Female
  Weight: 60.32 kg

DRUGS (1)
  1. AROMASIN [Suspect]
     Indication: BREAST CANCER
     Dosage: 25 mg, 1x/day
     Route: 048
     Dates: start: 201002, end: 20121001

REACTIONS (1)
  - Hot flush [Not Recovered/Not Resolved]
